FAERS Safety Report 11306213 (Version 1)
Quarter: 2015Q3

REPORT INFORMATION
  Report Type: Spontaneous
  Country: US (occurrence: US)
  Receive Date: 20150723
  Receipt Date: 20150723
  Transmission Date: 20151125
  Serious: No
  Sender: FDA-Public Use
  Company Number: US-PFIZER INC-2015241912

PATIENT
  Age: 58 Year
  Sex: Female

DRUGS (2)
  1. ESTRADIOL. [Suspect]
     Active Substance: ESTRADIOL
     Indication: HYPERHIDROSIS
  2. ESTRADIOL. [Suspect]
     Active Substance: ESTRADIOL
     Indication: FLUSHING
     Dosage: UNK

REACTIONS (1)
  - Genital atrophy [Unknown]
